FAERS Safety Report 24991727 (Version 2)
Quarter: 2025Q2

REPORT INFORMATION
  Report Type: Spontaneous
  Country: US (occurrence: US)
  Receive Date: 20250220
  Receipt Date: 20250515
  Transmission Date: 20250716
  Serious: Yes (Other)
  Sender: EMD SERONO INC
  Company Number: US-Merck Healthcare KGaA-2025007634

PATIENT
  Age: 32 Year
  Sex: Female

DRUGS (1)
  1. MAVENCLAD [Suspect]
     Active Substance: CLADRIBINE
     Indication: Multiple sclerosis

REACTIONS (7)
  - Fatigue [Recovered/Resolved]
  - Loss of personal independence in daily activities [Unknown]
  - Fall [Recovered/Resolved]
  - Musculoskeletal disorder [Unknown]
  - Depressed mood [Unknown]
  - Frustration tolerance decreased [Unknown]
  - Pain [Recovered/Resolved]
